FAERS Safety Report 4615649-0 (Version None)
Quarter: 2005Q1

REPORT INFORMATION
  Report Type: 
  Country: None (occurrence: None)
  Receive Date: 20050322
  Receipt Date: 20050315
  Transmission Date: 20050727
  Serious: Yes (Death)
  Sender: FDA-Public Use
  Company Number: NO-MERCK-0503NOR00039

PATIENT
  Age: 56 Year
  Sex: Male

DRUGS (7)
  1. ASPIRIN AND MAGNESIUM OXIDE [Concomitant]
     Route: 048
     Dates: start: 19990101, end: 20040101
  2. NITROGLYCERIN [Concomitant]
     Route: 048
     Dates: start: 19990101, end: 20040101
  3. VIOXX [Suspect]
     Indication: OSTEOARTHRITIS
     Route: 048
     Dates: start: 20020101, end: 20040101
  4. AMLODIPINE BESYLATE [Concomitant]
     Route: 048
     Dates: start: 19990101, end: 20040101
  5. METOPROLOL TARTRATE [Concomitant]
     Route: 048
     Dates: start: 19990101, end: 20040101
  6. ZOCOR [Concomitant]
     Route: 048
     Dates: start: 19990101, end: 20040101
  7. VASOTEC [Concomitant]
     Route: 048
     Dates: start: 19990101, end: 20040101

REACTIONS (1)
  - ACUTE MYOCARDIAL INFARCTION [None]
